FAERS Safety Report 9646664 (Version 2)
Quarter: 2014Q2

REPORT INFORMATION
  Report Type: Spontaneous
  Country: CA (occurrence: CA)
  Receive Date: 20131026
  Receipt Date: 20140401
  Transmission Date: 20141212
  Serious: Yes (Death, Hospitalization, Other)
  Sender: FDA-Public Use
  Company Number: CA-TEVA-440778USA

PATIENT
  Age: 67 Year
  Sex: Male
  Weight: 76.2 kg

DRUGS (19)
  1. TREANDA [Suspect]
     Indication: CHRONIC LYMPHOCYTIC LEUKAEMIA
     Route: 042
     Dates: start: 201303
  2. BLEOMYCIN [Suspect]
     Indication: CHRONIC LYMPHOCYTIC LEUKAEMIA
     Route: 042
     Dates: start: 2012, end: 201209
  3. HYDROCHLOROTHIAZIDE [Suspect]
     Indication: BLOOD PRESSURE
     Dates: end: 201304
  4. VINCRISTINE [Suspect]
     Indication: CHRONIC LYMPHOCYTIC LEUKAEMIA
     Route: 042
     Dates: start: 201212, end: 201303
  5. FLUDARABINE [Suspect]
     Indication: CHRONIC LYMPHOCYTIC LEUKAEMIA
     Route: 042
     Dates: start: 2012, end: 201209
  6. CYCLOPHOSPHAMIDE [Suspect]
     Route: 042
  7. NEULASTA (PEGFILGRASTIM) [Suspect]
     Indication: CHRONIC LYMPHOCYTIC LEUKAEMIA
     Route: 042
     Dates: start: 201303
  8. PREDNISONE [Suspect]
     Indication: CHRONIC LYMPHOCYTIC LEUKAEMIA
     Route: 042
     Dates: start: 201212, end: 201303
  9. RITUXAN [Suspect]
     Indication: CHRONIC LYMPHOCYTIC LEUKAEMIA
     Route: 042
     Dates: start: 2012, end: 201209
  10. ENALAPRIL [Suspect]
     Indication: BLOOD PRESSURE
     Route: 042
     Dates: end: 201304
  11. ANUSOL HC (HYDROCORTISONE ACETATE) (OINTMENT) [Concomitant]
     Indication: HAEMORRHOIDS
  12. CHOLECALCIFEROL [Concomitant]
  13. FLUTICASONE [Concomitant]
     Indication: SEASONAL ALLERGY
  14. FLUTICASONE [Concomitant]
     Indication: UPPER-AIRWAY COUGH SYNDROME
  15. LUTEIN [Concomitant]
  16. OXAZEPAM [Concomitant]
     Indication: ANXIETY
  17. PROCHLORPERAZINE [Concomitant]
     Indication: NAUSEA
  18. SERTRALINE [Concomitant]
  19. TYLENOL [Concomitant]

REACTIONS (4)
  - Death [Fatal]
  - Blood pressure decreased [Unknown]
  - Drug ineffective [Unknown]
  - Febrile neutropenia [Recovering/Resolving]
